FAERS Safety Report 5147715-8 (Version None)
Quarter: 2006Q4

REPORT INFORMATION
  Report Type: 
  Country: None (occurrence: None)
  Receive Date: 20061110
  Receipt Date: 20061030
  Transmission Date: 20070319
  Serious: Yes (Hospitalization)
  Sender: FDA-Public Use
  Company Number: AU-AMGEN-US198660

PATIENT
  Sex: Female

DRUGS (6)
  1. PANITUMUMAB [Suspect]
     Indication: METASTATIC NEOPLASM
     Route: 042
     Dates: start: 20060808
  2. PANITUMUMAB [Suspect]
     Indication: COLORECTAL CANCER
  3. AMG 706 [Suspect]
     Indication: METASTATIC NEOPLASM
     Route: 048
     Dates: start: 20060810
  4. IRINOTECAN HCL [Concomitant]
     Route: 042
  5. FOLINIC ACID [Concomitant]
     Route: 042
  6. FLUOROURACIL [Concomitant]
     Route: 042

REACTIONS (1)
  - RASH [None]
